FAERS Safety Report 7517663-4 (Version None)
Quarter: 2011Q2

REPORT INFORMATION
  Report Type: 
  Country: None (occurrence: None)
  Receive Date: 20110602
  Receipt Date: 20110524
  Transmission Date: 20111010
  Serious: Yes (Other)
  Sender: FDA-Public Use
  Company Number: US-BIOGENIDEC-2011BI017581

PATIENT
  Age: 54 Year
  Sex: Female

DRUGS (11)
  1. TYSABRI [Suspect]
     Route: 042
     Dates: start: 20061227, end: 20070126
  2. DETROL [Concomitant]
  3. GABAPENTIN [Concomitant]
  4. AVONEX [Concomitant]
     Indication: MULTIPLE SCLEROSIS
     Route: 030
     Dates: start: 20050901
  5. LYTREN (ELECTROLYTE REPLACER) [Concomitant]
  6. AVONEX [Concomitant]
     Route: 030
     Dates: start: 20020704, end: 20040720
  7. TRAZODONE HCL [Concomitant]
  8. TYSABRI [Suspect]
     Indication: MULTIPLE SCLEROSIS
     Route: 042
     Dates: start: 20070716
  9. SEREVENT [Concomitant]
  10. FLONASE [Concomitant]
  11. KLONOPIN [Concomitant]

REACTIONS (1)
  - BASAL CELL CARCINOMA [None]
